FAERS Safety Report 6336185-X (Version None)
Quarter: 2009Q3

REPORT INFORMATION
  Report Type: 
  Country: None (occurrence: None)
  Receive Date: 20090901
  Receipt Date: 20090819
  Transmission Date: 20100115
  Serious: Yes (Hospitalization)
  Sender: FDA-Public Use
  Company Number: GB-PFIZER INC-2009247337

PATIENT
  Age: 81 Year

DRUGS (2)
  1. VIAGRA [Suspect]
     Indication: ERECTILE DYSFUNCTION
     Dosage: 100 MG, UNK
     Dates: start: 20011101
  2. TAMSULOSIN [Suspect]
     Indication: BENIGN PROSTATIC HYPERPLASIA
     Dosage: 400 UG, 1X/DAY
     Dates: start: 20090205

REACTIONS (5)
  - BENIGN PROSTATIC HYPERPLASIA [None]
  - DRUG EFFECT DECREASED [None]
  - EJACULATION FAILURE [None]
  - POTENTIATING DRUG INTERACTION [None]
  - URINARY RETENTION [None]
